FAERS Safety Report 8591376-2 (Version None)
Quarter: 2012Q3

REPORT INFORMATION
  Report Type: 
  Country: None (occurrence: None)
  Receive Date: 20120803
  Receipt Date: 20120803
  Transmission Date: 20120928
  Serious: Yes (Other)
  Sender: FDA-Public Use
  Company Number: None

PATIENT
  Sex: Male

DRUGS (3)
  1. JANUVIA [Suspect]
     Indication: DIABETES MELLITUS
     Dosage: 100MG ONCE A DAY PO
     Route: 048
     Dates: start: 20120710, end: 20120711
  2. DIATALAZAM [Concomitant]
  3. GLIPOSIDE [Concomitant]

REACTIONS (1)
  - RENAL PAIN [None]
